FAERS Safety Report 15606803 (Version 1)
Quarter: 2018Q4

REPORT INFORMATION
  Report Type: Spontaneous
  Country: US (occurrence: US)
  Receive Date: 20181106
  Receipt Date: 20181106
  Transmission Date: 20190205
  Serious: Yes (Hospitalization)
  Sender: FDA-Public Use
  Company Number: None

PATIENT
  Age: 49 Year
  Sex: Male

DRUGS (5)
  1. D3 2000UNIT [Concomitant]
  2. HYDROXYCHLOR 200MG [Concomitant]
  3. AZATHIOPRINE 50MG [Concomitant]
     Active Substance: AZATHIOPRINE
  4. PREDNISONE 10+20MG [Concomitant]
  5. ESBRIET [Suspect]
     Active Substance: PIRFENIDONE
     Route: 048
     Dates: start: 20170830

REACTIONS (1)
  - Pneumonia [None]

NARRATIVE: CASE EVENT DATE: 20180915
